FAERS Safety Report 13936098 (Version 2)
Quarter: 2017Q3

REPORT INFORMATION
  Report Type: Report from Study
  Country: PL (occurrence: PL)
  Receive Date: 20170905
  Receipt Date: 20170912
  Transmission Date: 20171127
  Serious: Yes (Disabling)
  Sender: FDA-Public Use
  Company Number: PL-ROCHE-1986401

PATIENT
  Age: 62 Year
  Sex: Male
  Weight: 91 kg

DRUGS (17)
  1. BISOPROLOL [Concomitant]
     Active Substance: BISOPROLOL
     Indication: HYPERTENSION
     Route: 048
  2. CAMPHOR [Concomitant]
     Active Substance: CAMPHOR
     Indication: RASH MACULO-PAPULAR
     Route: 061
     Dates: start: 20170908
  3. INDAPAMIDE. [Concomitant]
     Active Substance: INDAPAMIDE
     Indication: HYPERTENSION
     Route: 048
  4. AMLODIPINE [Concomitant]
     Active Substance: AMLODIPINE BESYLATE
     Indication: HYPERTENSION
     Route: 048
  5. SALICYLIC ACID. [Concomitant]
     Active Substance: SALICYLIC ACID
     Indication: RASH MACULO-PAPULAR
     Route: 061
     Dates: start: 20170908
  6. ETOPOSIDE. [Suspect]
     Active Substance: ETOPOSIDE
     Indication: SMALL CELL LUNG CANCER EXTENSIVE STAGE
     Dosage: 100 MG/M^2 ON DAYS 1, 2, AND 3 OF EACH 21-DAY CYCLE DURING THE INDUCTION PHASE (CYCLES 1-4).?START T
     Route: 042
     Dates: start: 20170425
  7. MAGNESIUM LACTATE [Concomitant]
     Active Substance: MAGNESIUM LACTATE
     Indication: HYPOMAGNESAEMIA
     Route: 048
     Dates: start: 20170626, end: 20170724
  8. ATEZOLIZUMAB. [Suspect]
     Active Substance: ATEZOLIZUMAB
     Indication: SMALL CELL LUNG CANCER EXTENSIVE STAGE
     Dosage: DATE OF MOST RECENT DOSE OF ATEZOLIZUMAB/PLACEBO PRIOR TO AE ONSET ON 26/JUL/2017 AT 10 50 1190MG
     Route: 042
     Dates: start: 20170425
  9. CARBOPLATIN. [Suspect]
     Active Substance: CARBOPLATIN
     Indication: SMALL CELL LUNG CANCER EXTENSIVE STAGE
     Dosage: AUC OF 5 MG/ML/MIN WILL BE ADMINISTERED ON DAY 1 OF EACH 21-DAY CYCLE DURING THE INDUCTION PHASE (CY
     Route: 042
     Dates: start: 20170425
  10. FERROUS SULFATE. [Concomitant]
     Active Substance: FERROUS SULFATE
     Indication: ANAEMIA
     Route: 048
     Dates: start: 20170725
  11. MAGNESIUM LACTATE [Concomitant]
     Active Substance: MAGNESIUM LACTATE
     Route: 048
     Dates: start: 20170725
  12. PYRIDOXINE [Concomitant]
     Active Substance: PYRIDOXINE
     Indication: HYPOMAGNESAEMIA
     Route: 048
     Dates: start: 20170626, end: 20170724
  13. PYRIDOXINE [Concomitant]
     Active Substance: PYRIDOXINE
     Route: 048
     Dates: start: 20170725
  14. FOLIC ACID. [Concomitant]
     Active Substance: FOLIC ACID
     Indication: ANAEMIA
     Route: 048
     Dates: start: 20170725
  15. NICOTINAMIDE [Concomitant]
     Active Substance: NIACINAMIDE
     Indication: RASH MACULO-PAPULAR
     Route: 061
     Dates: start: 20170908
  16. RAMIPRIL. [Concomitant]
     Active Substance: RAMIPRIL
     Indication: HYPERTENSION
     Route: 048
  17. ALLANTOIN. [Concomitant]
     Active Substance: ALLANTOIN
     Indication: RASH MACULO-PAPULAR
     Route: 061
     Dates: start: 20170908

REACTIONS (1)
  - Autoimmune thyroiditis [Recovering/Resolving]

NARRATIVE: CASE EVENT DATE: 20170808
